FAERS Safety Report 18210108 (Version 2)
Quarter: 2022Q1

REPORT INFORMATION
  Report Type: Spontaneous
  Country: FR (occurrence: FR)
  Receive Date: 20200829
  Receipt Date: 20220316
  Transmission Date: 20220424
  Serious: Yes (Disabling, Other)
  Sender: FDA-Public Use
  Company Number: FR-STADA-206093

PATIENT
  Age: 63 Year
  Sex: Female

DRUGS (1)
  1. IMATINIB [Suspect]
     Active Substance: IMATINIB
     Indication: Gastrointestinal stromal tumour
     Dosage: 400 MILLIGRAM, ONCE A DAY (ADJUVANT THERAPY)
     Route: 065

REACTIONS (7)
  - Bone marrow oedema [Recovered/Resolved]
  - Erythrocyanosis [Recovered/Resolved]
  - Arthralgia [Recovered/Resolved]
  - Joint swelling [Recovered/Resolved]
  - Gait disturbance [Recovered/Resolved]
  - Effusion [Recovered/Resolved]
  - Decreased activity [Recovered/Resolved]
